FAERS Safety Report 10019471 (Version 1)
Quarter: 2014Q1

REPORT INFORMATION
  Report Type: Report from Study
  Country: US (occurrence: US)
  Receive Date: 20140318
  Receipt Date: 20140318
  Transmission Date: 20141002
  Serious: Yes (Other)
  Sender: FDA-Public Use
  Company Number: US-PFIZER INC-2014073479

PATIENT
  Age: 24 Year
  Sex: Female

DRUGS (2)
  1. VIRACEPT [Suspect]
     Indication: ANTIVIRAL TREATMENT
     Dosage: 2500 MG, DAILY
     Route: 048
     Dates: start: 20131021
  2. COMBIVIR [Suspect]
     Indication: ANTIVIRAL TREATMENT
     Dosage: 2 DF, DAILY
     Route: 048
     Dates: start: 20131021

REACTIONS (1)
  - Foetal death [Unknown]
